FAERS Safety Report 7408600-1 (Version None)
Quarter: 2011Q2

REPORT INFORMATION
  Report Type: 
  Country: None (occurrence: None)
  Receive Date: 20110412
  Receipt Date: 20110328
  Transmission Date: 20111010
  Serious: Yes (Other)
  Sender: FDA-Public Use
  Company Number: PHHY2011FR26480

PATIENT
  Sex: Female

DRUGS (3)
  1. AZILECT [Suspect]
  2. STALEVO 100 [Suspect]
  3. VITAMIN K TAB [Concomitant]

REACTIONS (2)
  - TOXIC SKIN ERUPTION [None]
  - RASH PAPULAR [None]
